FAERS Safety Report 15598027 (Version 1)
Quarter: 2018Q4

REPORT INFORMATION
  Report Type: Spontaneous
  Country: US (occurrence: US)
  Receive Date: 20181108
  Receipt Date: 20181108
  Transmission Date: 20190205
  Serious: No
  Sender: FDA-Public Use
  Company Number: US-MYLANLABS-2018M1079145

PATIENT
  Sex: Male
  Weight: 82 kg

DRUGS (1)
  1. NITROGLYCERIN TRANSDERMAL DELIVERY SYSTEM [Suspect]
     Active Substance: NITROGLYCERIN
     Indication: TENDONITIS
     Dosage: UNK
     Route: 062

REACTIONS (2)
  - Off label use [Recovering/Resolving]
  - Therapeutic response unexpected [Recovered/Resolved]
